FAERS Safety Report 14244735 (Version 2)
Quarter: 2017Q4

REPORT INFORMATION
  Report Type: Spontaneous
  Country: MA (occurrence: MA)
  Receive Date: 20171201
  Receipt Date: 20171207
  Transmission Date: 20180321
  Serious: Yes (Death, Other)
  Sender: FDA-Public Use
  Company Number: MA-JNJFOC-20171136604

PATIENT
  Age: 68 Year
  Sex: Male
  Weight: 81 kg

DRUGS (4)
  1. ZOMETA [Concomitant]
     Active Substance: ZOLEDRONIC ACID
     Indication: METASTASES TO BONE
     Route: 042
     Dates: start: 201507, end: 201611
  2. DECAPEPTYL [Concomitant]
     Active Substance: TRIPTORELIN
     Indication: HORMONE THERAPY
     Route: 030
     Dates: start: 201511, end: 201610
  3. ZYTIGA [Suspect]
     Active Substance: ABIRATERONE ACETATE
     Indication: PROSTATE CANCER METASTATIC
     Dosage: 250 MG X 4 TABLETS PER DAY
     Route: 048
     Dates: start: 20151221, end: 20160330
  4. PREDNISONE. [Concomitant]
     Active Substance: PREDNISONE
     Indication: PRODUCT USED FOR UNKNOWN INDICATION
     Route: 048
     Dates: start: 20151221

REACTIONS (3)
  - Death [Fatal]
  - Fatigue [Recovered/Resolved with Sequelae]
  - Prostatic specific antigen increased [Unknown]

NARRATIVE: CASE EVENT DATE: 201601
